FAERS Safety Report 6828342-0 (Version None)
Quarter: 2010Q3

REPORT INFORMATION
  Report Type: 
  Country: None (occurrence: None)
  Receive Date: 20100708
  Receipt Date: 20100708
  Transmission Date: 20110219
  Serious: Yes (Other)
  Sender: FDA-Public Use
  Company Number: None

PATIENT
  Age: 86 Year
  Sex: Male
  Weight: 50.8029 kg

DRUGS (1)
  1. FORADIL [Suspect]
     Dosage: INHALE THE CONTENTS OF 1 CAPSULE TWO TIMES A DAY
     Route: 055
     Dates: start: 20100607, end: 20100629

REACTIONS (1)
  - DRUG INEFFECTIVE [None]
